FAERS Safety Report 6407711-7 (Version None)
Quarter: 2009Q4

REPORT INFORMATION
  Report Type: 
  Country: None (occurrence: None)
  Receive Date: 20091015
  Receipt Date: 20090930
  Transmission Date: 20100525
  Serious: Yes (Life-Threatening, Other)
  Sender: FDA-Public Use
  Company Number: DE-1171130

PATIENT
  Age: 77 Year
  Sex: Female

DRUGS (9)
  1. FLUORESCEIN SODIUM (FLUORESCEIN SODIUM) 10 % INJECTION LOT# 162723F SO [Suspect]
     Dosage: 5 ML INTRAVENOUS BOLUS
     Route: 040
     Dates: start: 20090929, end: 20090929
  2. VERAHEXAL (VERAPAMIL HYDROCHLORIDE) [Concomitant]
  3. RAMIPRIL [Concomitant]
  4. PREDNISON (PREDNISONE) [Concomitant]
  5. HYDROCHLOROTHIAZIDE [Concomitant]
  6. RANIDURA (RANITIDINE HYDROCHLORIDE) [Concomitant]
  7. SIMVASTATIN [Concomitant]
  8. BERODUAL (DUOVENT) [Concomitant]
  9. BUDIAIR (BUDESONIDE) [Concomitant]

REACTIONS (5)
  - BLOOD PRESSURE DECREASED [None]
  - CARDIAC ARREST [None]
  - HYPERSENSITIVITY [None]
  - PULSE ABSENT [None]
  - VERTIGO [None]
